FAERS Safety Report 20629026 (Version 2)
Quarter: 2022Q4

REPORT INFORMATION
  Report Type: Other
  Country: CN (occurrence: CN)
  Receive Date: 20220323
  Receipt Date: 20221108
  Transmission Date: 20230112
  Serious: Yes (Death, Other)
  Sender: FDA-Public Use
  Company Number: CN-BoehringerIngelheim-2022-BI-160242

PATIENT
  Age: 58 Year
  Sex: Female

DRUGS (4)
  1. ALTEPLASE [Suspect]
     Active Substance: ALTEPLASE
     Indication: Ischaemic stroke
     Dosage: 0.6 MG/KG OVER 1 HOUR; 10% AS AN INITIAL BOLUS,
     Route: 042
  2. ALTEPLASE [Suspect]
     Active Substance: ALTEPLASE
     Dosage: TOTAL DOSE 47.2 MG) WAS ADMINISTERED AT 90 MINUTES AFTER STROKE
     Route: 042
  3. LINEZOLID [Concomitant]
     Active Substance: LINEZOLID
     Indication: Meningitis
     Route: 042
  4. MEROPENEM [Concomitant]
     Active Substance: MEROPENEM
     Indication: Meningitis
     Route: 042

REACTIONS (5)
  - Brain herniation [Fatal]
  - Arteriosclerosis [Unknown]
  - Coma [Unknown]
  - Subarachnoid haemorrhage [Unknown]
  - Cerebral haemorrhage [Unknown]
